FAERS Safety Report 4514060-0 (Version None)
Quarter: 2004Q4

REPORT INFORMATION
  Report Type: 
  Country: None (occurrence: None)
  Receive Date: 20041130
  Receipt Date: 20041105
  Transmission Date: 20050328
  Serious: Yes (Hospitalization)
  Sender: FDA-Public Use
  Company Number: AU-GLAXOSMITHKLINE-B0351151A

PATIENT
  Age: 53 Year
  Sex: Female
  Weight: 98 kg

DRUGS (2)
  1. TOPOTECAN [Suspect]
     Indication: OVARIAN CANCER
     Dosage: 7.5MG PER DAY
     Route: 042
     Dates: start: 20041023, end: 20041026
  2. CARBOPLATIN [Suspect]
     Indication: OVARIAN CANCER
     Dosage: 526MG PER DAY
     Route: 042
     Dates: start: 20041026, end: 20041026

REACTIONS (5)
  - ANAEMIA [None]
  - CIRCULATORY COLLAPSE [None]
  - FEBRILE NEUTROPENIA [None]
  - ILL-DEFINED DISORDER [None]
  - VOMITING [None]
